FAERS Safety Report 6390097-4 (Version None)
Quarter: 2009Q4

REPORT INFORMATION
  Report Type: 
  Country: None (occurrence: None)
  Receive Date: 20091006
  Receipt Date: 20090929
  Transmission Date: 20100525
  Serious: Yes (Other)
  Sender: FDA-Public Use
  Company Number: US-JNJFOC-20090906130

PATIENT
  Age: 47 Year
  Sex: Female
  Weight: 61.24 kg

DRUGS (2)
  1. TYLENOL (GELTAB) [Suspect]
     Route: 048
  2. TYLENOL (GELTAB) [Suspect]
     Indication: PAIN
     Route: 048

REACTIONS (1)
  - HYPERSENSITIVITY [None]
